FAERS Safety Report 8927971 (Version 1)
Quarter: 2012Q4

REPORT INFORMATION
  Report Type: Spontaneous
  Country: US (occurrence: None)
  Receive Date: 20121126
  Receipt Date: 20121126
  Transmission Date: 20130627
  Serious: Yes (Other)
  Sender: FDA-Public Use
  Company Number: None

PATIENT
  Sex: Male
  Weight: 172.37 kg

DRUGS (1)
  1. METHYLPHENIDATE [Suspect]
     Indication: ADHD
     Dates: start: 20110128, end: 201211

REACTIONS (3)
  - Vision blurred [None]
  - Disturbance in attention [None]
  - Product substitution issue [None]
